FAERS Safety Report 17665785 (Version 1)
Quarter: 2020Q2

REPORT INFORMATION
  Report Type: Spontaneous
  Country: US (occurrence: US)
  Receive Date: 20200413
  Receipt Date: 20200413
  Transmission Date: 20200713
  Serious: Yes (Hospitalization)
  Sender: FDA-Public Use
  Company Number: None

PATIENT
  Age: 42 Year
  Sex: Male

DRUGS (26)
  1. AMOXICILLIN. [Concomitant]
     Active Substance: AMOXICILLIN
  2. CEFDINIR. [Concomitant]
     Active Substance: CEFDINIR
  3. CLARITHROMYC [Concomitant]
  4. PROMETHAZINE [Concomitant]
     Active Substance: PROMETHAZINE HYDROCHLORIDE
  5. VITAMIN D [Concomitant]
     Active Substance: VITAMIN D NOS
  6. LISINOPRIL. [Concomitant]
     Active Substance: LISINOPRIL
  7. METFORMIN [Concomitant]
     Active Substance: METFORMIN HYDROCHLORIDE
  8. LEFLUNOMIDE. [Concomitant]
     Active Substance: LEFLUNOMIDE
  9. OXYCODONE AND ACETAMINOPHEN [Concomitant]
     Active Substance: ACETAMINOPHEN\OXYCODONE HYDROCHLORIDE
  10. PANTOPRAZOLE [Concomitant]
     Active Substance: PANTOPRAZOLE
  11. TRAZODONE HYDROCHLORIDE. [Concomitant]
     Active Substance: TRAZODONE HYDROCHLORIDE
  12. ENBREL [Suspect]
     Active Substance: ETANERCEPT
     Indication: RHEUMATOID ARTHRITIS
     Route: 058
  13. CEPHALEXIN. [Concomitant]
     Active Substance: CEPHALEXIN
  14. FLUCONAZOLE. [Concomitant]
     Active Substance: FLUCONAZOLE
  15. OMEPRAZOLE. [Concomitant]
     Active Substance: OMEPRAZOLE
  16. HYDROMORPHON [Concomitant]
     Active Substance: HYDROMORPHONE
  17. NARCAN [Concomitant]
     Active Substance: NALOXONE HYDROCHLORIDE
  18. HYDROCO/APAP [Concomitant]
     Active Substance: ACETAMINOPHEN\HYDROCODONE
  19. LOVASTATIN. [Concomitant]
     Active Substance: LOVASTATIN
  20. NITROFURANTIN [Concomitant]
     Active Substance: NITROFURANTOIN
  21. PEG-3350/KCL SOL/SODIUM [Concomitant]
  22. TAMSULOSIN [Concomitant]
     Active Substance: TAMSULOSIN
  23. AMOX/K CLAV [Concomitant]
     Active Substance: AMOXICILLIN\CLAVULANATE POTASSIUM
  24. NAPROXEN. [Concomitant]
     Active Substance: NAPROXEN
  25. ONDANSETRON [Concomitant]
     Active Substance: ONDANSETRON
  26. PREDNISONE. [Concomitant]
     Active Substance: PREDNISONE

REACTIONS (4)
  - Disease progression [None]
  - Therapy interrupted [None]
  - Hospitalisation [None]
  - Insurance issue [None]

NARRATIVE: CASE EVENT DATE: 20200406
